FAERS Safety Report 20933846 (Version 1)
Quarter: 2022Q2

REPORT INFORMATION
  Report Type: Spontaneous
  Country: US (occurrence: US)
  Receive Date: 20220608
  Receipt Date: 20220608
  Transmission Date: 20220720
  Serious: Yes (Other)
  Sender: FDA-Public Use
  Company Number: US-SUNOVION-2022SUN001742

PATIENT
  Sex: Female
  Weight: 68.934 kg

DRUGS (11)
  1. LATUDA [Suspect]
     Active Substance: LURASIDONE HYDROCHLORIDE
     Indication: Bipolar I disorder
     Dosage: 20 MG
     Route: 048
  2. LATUDA [Suspect]
     Active Substance: LURASIDONE HYDROCHLORIDE
     Dosage: 40 MG, QD (1 TABLET WITH FOOD)
     Route: 048
  3. CLONAZEPAM [Concomitant]
     Active Substance: CLONAZEPAM
     Indication: Anxiety
     Dosage: 0.5 MG, QD
     Route: 048
  4. OMEPRAZOLE [Concomitant]
     Active Substance: OMEPRAZOLE
     Dosage: 20 MG, QD
     Route: 048
  5. BUSPIRONE HCL [Concomitant]
     Active Substance: BUSPIRONE HYDROCHLORIDE
     Indication: Generalised anxiety disorder
     Dosage: 10 MG, QD
     Route: 048
  6. BUSPIRONE HCL [Concomitant]
     Active Substance: BUSPIRONE HYDROCHLORIDE
     Indication: Affective disorder
     Dosage: 15 MG, QD
     Route: 048
  7. WELLBUTRIN XL [Concomitant]
     Active Substance: BUPROPION HYDROCHLORIDE
     Indication: Bipolar I disorder
     Dosage: 150 MG, QD (1 TABLET IN THE MORNING)
  8. LEVOTHYROXINE SODIUM [Concomitant]
     Active Substance: LEVOTHYROXINE SODIUM
     Dosage: 50 ?G, QD (1 TABLET ON AN EMPTY STOMACH IN THE MORNING)
     Route: 048
  9. YAZ [Concomitant]
     Active Substance: DROSPIRENONE\ETHINYL ESTRADIOL
     Dosage: UNK UNK, QD (3-0.02 MG ONCE A DAY)
     Route: 048
  10. CELEXA [Concomitant]
     Active Substance: CITALOPRAM HYDROBROMIDE
     Indication: Affective disorder
     Dosage: 20 MG, QD
     Route: 048
  11. CELEXA [Concomitant]
     Active Substance: CITALOPRAM HYDROBROMIDE
     Indication: Anxiety

REACTIONS (17)
  - Suicidal ideation [Recovered/Resolved]
  - Disturbance in attention [Unknown]
  - Daydreaming [Unknown]
  - Memory impairment [Unknown]
  - Feeling drunk [Unknown]
  - Anhedonia [Unknown]
  - Apathy [Unknown]
  - Asthenia [Unknown]
  - Depression [Unknown]
  - Irritability [Unknown]
  - Fear [Unknown]
  - Restlessness [Unknown]
  - Anxiety [Unknown]
  - Insomnia [Unknown]
  - Weight increased [Unknown]
  - Panic attack [Unknown]
  - Therapy interrupted [Unknown]
